FAERS Safety Report 4771034-2 (Version None)
Quarter: 2005Q3

REPORT INFORMATION
  Report Type: 
  Country: None (occurrence: None)
  Receive Date: 20050914
  Receipt Date: 20050831
  Transmission Date: 20060218
  Serious: Yes (Other)
  Sender: FDA-Public Use
  Company Number: AU_050908899

PATIENT
  Age: 32 Year
  Sex: Male

DRUGS (1)
  1. ZYPREXA [Suspect]
     Dosage: 2.5 MG/PER DAY
     Dates: start: 20050801

REACTIONS (1)
  - ATRIOVENTRICULAR BLOCK FIRST DEGREE [None]
